FAERS Safety Report 9770094 (Version 2)
Quarter: 2013Q4

REPORT INFORMATION
  Report Type: Spontaneous
  Country: US (occurrence: US)
  Receive Date: 20131218
  Receipt Date: 20131218
  Transmission Date: 20140711
  Serious: Yes (Other)
  Sender: FDA-Public Use
  Company Number: US-VERTEX PHARMACEUTICALS INC-AE-2011-000869

PATIENT
  Sex: 0

DRUGS (6)
  1. INCIVEK [Suspect]
     Indication: HEPATITIS C
     Route: 048
     Dates: start: 20110803, end: 20110803
  2. PEGINTRON ALPHA [Concomitant]
     Indication: HEPATITIS C
     Route: 058
     Dates: start: 20110803, end: 20110803
  3. REBETOL [Concomitant]
     Indication: HEPATITIS C
     Route: 048
     Dates: start: 20110803, end: 20110803
  4. ENALAPRIL [Concomitant]
     Route: 048
     Dates: start: 2009
  5. ACTIGALL [Concomitant]
     Route: 048
  6. BABY ASPIRIN [Concomitant]
     Route: 048

REACTIONS (5)
  - Dehydration [Recovered/Resolved]
  - Migraine [Recovered/Resolved]
  - Headache [Unknown]
  - Vomiting [Recovered/Resolved]
  - Retching [Recovered/Resolved]
